FAERS Safety Report 9206086 (Version 2)
Quarter: 2013Q4

REPORT INFORMATION
  Report Type: Spontaneous
  Country: US (occurrence: US)
  Receive Date: 20130403
  Receipt Date: 20131205
  Transmission Date: 20140711
  Serious: Yes (Other)
  Sender: FDA-Public Use
  Company Number: US-BAYER-2013-039923

PATIENT
  Age: 39 Year
  Sex: Female

DRUGS (7)
  1. YAZ [Suspect]
     Indication: CONTRACEPTION
     Dosage: UNK
  2. YASMIN [Suspect]
     Dosage: UNK
  3. ALENDRONATE SODIUM [Concomitant]
     Dosage: 70 MG, EVERY WEEK
  4. HYOSCYAMINE [Concomitant]
     Dosage: 0.125 MG, PRIOR TO EACH MEAL AND HS
  5. EQUATE [Concomitant]
     Dosage: UNK
     Dates: start: 20100212
  6. LEXAPRO [Concomitant]
     Dosage: 20 MG, EVERY DAY
     Dates: start: 20100212
  7. CALCIUM [Concomitant]
     Dosage: UNK
     Dates: start: 20100212

REACTIONS (5)
  - Cholecystectomy [None]
  - Biliary dyskinesia [None]
  - Injury [None]
  - Pain [None]
  - Pain [None]
